FAERS Safety Report 19706299 (Version 1)
Quarter: 2021Q3

REPORT INFORMATION
  Report Type: Spontaneous
  Country: BR (occurrence: BR)
  Receive Date: 20210817
  Receipt Date: 20210817
  Transmission Date: 20211014
  Serious: Yes (Other)
  Sender: FDA-Public Use
  Company Number: BR-EMD SERONO-9257955

PATIENT
  Sex: Female

DRUGS (1)
  1. GLIFAGE [Suspect]
     Active Substance: METFORMIN HYDROCHLORIDE
     Indication: GLUCOSE TOLERANCE IMPAIRED
     Route: 048
     Dates: start: 201908

REACTIONS (6)
  - Cardiac murmur [Unknown]
  - Intracranial aneurysm [Unknown]
  - Treatment noncompliance [Unknown]
  - Fatigue [Unknown]
  - Memory impairment [Unknown]
  - Hypoacusis [Unknown]
